FAERS Safety Report 5400018-6 (Version None)
Quarter: 2007Q3

REPORT INFORMATION
  Report Type: 
  Country: None (occurrence: None)
  Receive Date: 20070725
  Receipt Date: 20070711
  Transmission Date: 20080115
  Serious: Yes (Other)
  Sender: FDA-Public Use
  Company Number: 2007SP014003

PATIENT
  Age: 65 Year
  Sex: Female
  Weight: 72.7 kg

DRUGS (6)
  1. TEMODAL [Suspect]
     Indication: GLIOBLASTOMA MULTIFORME
     Dosage: 130 MG; QD; PO
     Route: 048
     Dates: start: 20070607, end: 20070709
  2. ALTACE [Concomitant]
  3. DECADRON [Concomitant]
  4. INSULIN [Concomitant]
  5. KYTRIL [Concomitant]
  6. SYNTHROID [Concomitant]

REACTIONS (5)
  - ASTHENIA [None]
  - FATIGUE [None]
  - LETHARGY [None]
  - MALAISE [None]
  - PLATELET COUNT DECREASED [None]
